FAERS Safety Report 4441387-3 (Version None)
Quarter: 2004Q3

REPORT INFORMATION
  Report Type: 
  Country: None (occurrence: None)
  Receive Date: 20040728
  Receipt Date: 20040507
  Transmission Date: 20050211
  Serious: No
  Sender: FDA-Public Use
  Company Number: USA040566991

PATIENT
  Age: 13 Year
  Sex: Male
  Weight: 55 kg

DRUGS (3)
  1. STRATTERA [Suspect]
     Indication: ATTENTION DEFICIT/HYPERACTIVITY DISORDER
     Dosage: 25 MG DAY
     Dates: start: 20040504
  2. ZITHROMAX Z-PACK (AXITHROMYCIN) [Concomitant]
  3. MEDROL DOSEPAK (METHYLPREDNISOLONE) [Concomitant]

REACTIONS (2)
  - MUSCLE TWITCHING [None]
  - VOMITING [None]
